FAERS Safety Report 5664705-7 (Version None)
Quarter: 2008Q1

REPORT INFORMATION
  Report Type: 
  Country: None (occurrence: None)
  Receive Date: 20080314
  Receipt Date: 20080311
  Transmission Date: 20080703
  Serious: Yes (Death, Hospitalization, Other)
  Sender: FDA-Public Use
  Company Number: PT-BRISTOL-MYERS SQUIBB COMPANY-13997226

PATIENT
  Sex: Male

DRUGS (4)
  1. REYATAZ [Suspect]
     Indication: HIV INFECTION
     Route: 048
     Dates: start: 20070708
  2. RITONAVIR [Suspect]
     Dates: start: 20050101
  3. COMBIVIR [Suspect]
     Dosage: 1 DOSAGE FORM = 1 TABLET.
     Dates: start: 20050101
  4. INDINIVIR SULFATE [Suspect]
     Dates: start: 20050101, end: 20070101

REACTIONS (6)
  - ACUTE RESPIRATORY DISTRESS SYNDROME [None]
  - CD4 LYMPHOCYTES DECREASED [None]
  - PNEUMONIA [None]
  - RENAL FAILURE [None]
  - RESPIRATORY FAILURE [None]
  - SEPSIS [None]
